FAERS Safety Report 13545665 (Version 12)
Quarter: 2019Q2

REPORT INFORMATION
  Report Type: Spontaneous
  Country: US (occurrence: US)
  Receive Date: 20170515
  Receipt Date: 20190402
  Transmission Date: 20190711
  Serious: Yes (Hospitalization)
  Sender: FDA-Public Use
  Company Number: US-PFIZER INC-2017208972

PATIENT
  Age: 66 Year
  Sex: Female
  Weight: 83 kg

DRUGS (5)
  1. IBRANCE [Suspect]
     Active Substance: PALBOCICLIB
     Dosage: 125 MG, CYCLIC (DAY 1 TO 21)
     Route: 048
     Dates: start: 20170424, end: 20170427
  2. IBRANCE [Suspect]
     Active Substance: PALBOCICLIB
     Dosage: 100 MG, CYCLIC (DAYS 1-21 EVERY 28 DAYS)
     Route: 048
     Dates: start: 20170420
  3. IBRANCE [Suspect]
     Active Substance: PALBOCICLIB
     Indication: BREAST CANCER METASTATIC
     Dosage: 125 MG, CYCLIC (DAY 1 TO 21 EVERY 28 DAYS)
     Route: 048
     Dates: start: 20170420
  4. IBRANCE [Suspect]
     Active Substance: PALBOCICLIB
     Dosage: 100 MG, CYCLIC (DAY 1 TO 21 EVERY 28 DAYS)
     Route: 048
     Dates: start: 20170420
  5. IBRANCE [Suspect]
     Active Substance: PALBOCICLIB
     Dosage: 100 MG, CYCLIC (DAY 1 TO 21 EVERY 28 DAYS)
     Route: 048
     Dates: start: 20170420

REACTIONS (15)
  - Nasopharyngitis [Unknown]
  - Stomatitis [Unknown]
  - Paranasal sinus discomfort [Unknown]
  - Neoplasm progression [Unknown]
  - Sinus congestion [Unknown]
  - Dizziness [Unknown]
  - Urinary incontinence [Unknown]
  - Ataxia [Unknown]
  - Feeling of body temperature change [Unknown]
  - Diarrhoea [Not Recovered/Not Resolved]
  - Balance disorder [Unknown]
  - Diplopia [Unknown]
  - Vision blurred [Recovering/Resolving]
  - Rhinorrhoea [Unknown]
  - Fall [Unknown]

NARRATIVE: CASE EVENT DATE: 2017
